FAERS Safety Report 15344475 (Version 3)
Quarter: 2019Q2

REPORT INFORMATION
  Report Type: Spontaneous
  Country: US (occurrence: US)
  Receive Date: 20180903
  Receipt Date: 20190611
  Transmission Date: 20190711
  Serious: Yes (Other)
  Sender: FDA-Public Use
  Company Number: US-SA-2018SA242544

PATIENT
  Age: 44 Year
  Sex: Female
  Weight: 92.07 kg

DRUGS (20)
  1. PERCOCET [Concomitant]
     Active Substance: ACETAMINOPHEN\OXYCODONE HYDROCHLORIDE
  2. IRON [Concomitant]
     Active Substance: IRON
     Dosage: UNK
     Dates: start: 20070101
  3. DOCETAXEL. [Suspect]
     Active Substance: DOCETAXEL
     Indication: BREAST CANCER FEMALE
     Dosage: 77 MG, QW
     Route: 042
     Dates: start: 20140422, end: 20140422
  4. ZOFRAN [Concomitant]
     Active Substance: ONDANSETRON HYDROCHLORIDE
  5. CLARITINE [Concomitant]
     Active Substance: LORATADINE
     Dosage: UNK
     Dates: start: 20020101
  6. ZYRTEC [Concomitant]
     Active Substance: CETIRIZINE HYDROCHLORIDE
     Dosage: UNK
     Dates: start: 20080101
  7. DOCETAXEL. [Suspect]
     Active Substance: DOCETAXEL
     Dosage: 77 MG, QW
     Route: 042
     Dates: start: 20140825, end: 20140825
  8. PARAPLATIN [Concomitant]
     Active Substance: CARBOPLATIN
  9. HERCEPTIN [Concomitant]
     Active Substance: TRASTUZUMAB
  10. NORCO [Concomitant]
     Active Substance: ACETAMINOPHEN\HYDROCODONE BITARTRATE
  11. BENADRYL 24 D [Concomitant]
     Active Substance: LORATADINE\PSEUDOEPHEDRINE SULFATE
  12. EPIPEN [Concomitant]
     Active Substance: EPINEPHRINE
  13. FILGRASTIM [Concomitant]
     Active Substance: FILGRASTIM
  14. ANASTROZOLE. [Concomitant]
     Active Substance: ANASTROZOLE
     Dosage: UNK
     Dates: start: 20171104
  15. HYDROCORTISONE. [Concomitant]
     Active Substance: HYDROCORTISONE
  16. DECADRON [Concomitant]
     Active Substance: DEXAMETHASONE
  17. LISINOPRIL. [Concomitant]
     Active Substance: LISINOPRIL
  18. NAPROXEN. [Concomitant]
     Active Substance: NAPROXEN
     Dosage: UNK
     Dates: start: 20070101
  19. COMPAZINE [PROCHLORPERAZINE EDISYLATE] [Concomitant]
     Active Substance: PROCHLORPERAZINE EDISYLATE
  20. COLACE [Concomitant]
     Active Substance: DOCUSATE SODIUM

REACTIONS (1)
  - Alopecia [Not Recovered/Not Resolved]

NARRATIVE: CASE EVENT DATE: 20150225
